FAERS Safety Report 11224225 (Version 3)
Quarter: 2015Q4

REPORT INFORMATION
  Report Type: Report from Study
  Country: US (occurrence: US)
  Receive Date: 20150629
  Receipt Date: 20151014
  Transmission Date: 20160304
  Serious: Yes (Hospitalization)
  Sender: FDA-Public Use
  Company Number: US-CELGENE-USA-2015063782

PATIENT
  Age: 69 Year
  Sex: Male
  Weight: 69.73 kg

DRUGS (9)
  1. CC-4047 [Suspect]
     Active Substance: POMALIDOMIDE
     Route: 048
     Dates: start: 20150616
  2. CC-4047 [Suspect]
     Active Substance: POMALIDOMIDE
     Indication: PLASMA CELL MYELOMA
     Route: 048
     Dates: start: 20150206, end: 20150206
  3. OMEPRAZOLE. [Concomitant]
     Active Substance: OMEPRAZOLE
     Indication: GASTROOESOPHAGEAL REFLUX DISEASE
     Route: 048
     Dates: start: 20150227
  4. NIFEDIPINE. [Concomitant]
     Active Substance: NIFEDIPINE
     Route: 048
     Dates: start: 20150612, end: 20150618
  5. DEXAMETHASONE. [Suspect]
     Active Substance: DEXAMETHASONE
     Indication: PLASMA CELL MYELOMA
     Route: 048
     Dates: start: 20150206, end: 20150227
  6. NIFEDIPINE. [Concomitant]
     Active Substance: NIFEDIPINE
     Indication: HYPERTENSION
     Route: 048
     Dates: start: 20130208, end: 20150611
  7. CC-4047 [Suspect]
     Active Substance: POMALIDOMIDE
     Route: 048
     Dates: start: 20150501, end: 20150529
  8. DEXAMETHASONE. [Suspect]
     Active Substance: DEXAMETHASONE
     Route: 048
     Dates: start: 20150501
  9. ASPIRIN. [Concomitant]
     Active Substance: ASPIRIN
     Indication: PROPHYLAXIS
     Route: 048
     Dates: start: 20140506

REACTIONS (1)
  - Small intestinal obstruction [Recovered/Resolved]

NARRATIVE: CASE EVENT DATE: 20150611
